FAERS Safety Report 9315315 (Version 2)
Quarter: 2013Q3

REPORT INFORMATION
  Report Type: Spontaneous
  Country: US (occurrence: US)
  Receive Date: 20130529
  Receipt Date: 20130709
  Transmission Date: 20140515
  Serious: Yes (Other)
  Sender: FDA-Public Use
  Company Number: US-PFIZER INC-2013160159

PATIENT
  Age: 43 Year
  Sex: Male
  Weight: 79.37 kg

DRUGS (7)
  1. GLIPIZIDE [Suspect]
     Indication: DIABETES MELLITUS
     Dosage: 10 MG, 1X/DAY
  2. DEPAKOTE [Concomitant]
     Dosage: 500 MG, UNK
  3. SEROQUEL [Concomitant]
     Indication: BIPOLAR DISORDER
     Dosage: 100 MG, UNK
  4. TRAZODONE [Concomitant]
     Dosage: 150 MG, UNK
  5. RISPERDAL [Concomitant]
     Dosage: 100 MG, UNK
  6. LISINOPRIL [Concomitant]
     Indication: HYPERTENSION
     Dosage: UNK
  7. METFORMIN [Concomitant]
     Dosage: 500 MG, UNK

REACTIONS (1)
  - Arthropathy [Unknown]
